FAERS Safety Report 17354840 (Version 1)
Quarter: 2020Q1

REPORT INFORMATION
  Report Type: Spontaneous
  Country: US (occurrence: US)
  Receive Date: 20200131
  Receipt Date: 20200131
  Transmission Date: 20200409
  Serious: No
  Sender: FDA-Public Use
  Company Number: US-PFIZER INC-2020039897

PATIENT
  Age: 64 Year
  Sex: Female

DRUGS (6)
  1. CHANTIX [Suspect]
     Active Substance: VARENICLINE TARTRATE
     Indication: SMOKING CESSATION THERAPY
     Dosage: UNK
  2. ASA [Concomitant]
     Active Substance: ASPIRIN
     Dosage: 81 MG, DAILY
  3. VITAMIN D [COLECALCIFEROL] [Concomitant]
     Active Substance: CHOLECALCIFEROL
     Dosage: UNK
  4. PHENOBARBITAL. [Concomitant]
     Active Substance: PHENOBARBITAL
     Dosage: UNK, 2X/DAY
  5. CALCIUM [Concomitant]
     Active Substance: CALCIUM
     Dosage: UNK, 2X/DAY
  6. VAGIFEM [Concomitant]
     Active Substance: ESTRADIOL
     Dosage: UNK

REACTIONS (2)
  - Irritability [Recovered/Resolved]
  - Abnormal dreams [Recovered/Resolved]
